FAERS Safety Report 21526248 (Version 1)
Quarter: 2022Q4

REPORT INFORMATION
  Report Type: Spontaneous
  Country: US (occurrence: US)
  Receive Date: 20221031
  Receipt Date: 20221031
  Transmission Date: 20230113
  Serious: No
  Sender: FDA-Public Use
  Company Number: US-BAUSCH-BL-2022-024359

PATIENT
  Sex: Female

DRUGS (2)
  1. XIFAXAN [Suspect]
     Active Substance: RIFAXIMIN
     Indication: Irritable bowel syndrome
     Route: 065
     Dates: end: 20221020
  2. XIFAXAN [Suspect]
     Active Substance: RIFAXIMIN
     Indication: Abdominal distension

REACTIONS (1)
  - Nausea [Unknown]
